FAERS Safety Report 11899322 (Version 1)
Quarter: 2016Q1

REPORT INFORMATION
  Report Type: Spontaneous
  Country: US (occurrence: US)
  Receive Date: 20160108
  Receipt Date: 20160108
  Transmission Date: 20160526
  Serious: No
  Sender: FDA-Public Use
  Company Number: US-SA-2015SA171173

PATIENT
  Age: 62 Year
  Sex: Male

DRUGS (7)
  1. AFREZZA [Suspect]
     Active Substance: INSULIN HUMAN
     Indication: TYPE 1 DIABETES MELLITUS
     Dosage: DOSE: 5-4 UNITS
     Route: 065
     Dates: start: 201510
  2. TOUJEO [Concomitant]
     Active Substance: INSULIN GLARGINE
     Dosage: DOSE:16 UNIT(S)
  3. SOLOSTAR [Concomitant]
     Active Substance: DEVICE
  4. INSULIN HUMAN [Concomitant]
     Active Substance: INSULIN HUMAN
     Dates: end: 201509
  5. SOLOSTAR [Concomitant]
     Active Substance: DEVICE
  6. TOUJEO [Concomitant]
     Active Substance: INSULIN GLARGINE
     Dosage: DOSE: 20-21 UNITS
     Dates: start: 201509
  7. AFREZZA [Suspect]
     Active Substance: INSULIN HUMAN
     Indication: TYPE 1 DIABETES MELLITUS
     Dosage: FREQUENCY: 5 TIMES A DAY BEFORE MEAL DOSE:4 UNIT(S)
     Route: 065
     Dates: start: 20151021

REACTIONS (1)
  - Blood glucose increased [Unknown]
